FAERS Safety Report 6430252-8 (Version None)
Quarter: 2009Q4

REPORT INFORMATION
  Report Type: 
  Country: None (occurrence: None)
  Receive Date: 20091106
  Receipt Date: 20091102
  Transmission Date: 20100525
  Serious: Yes (Life-Threatening)
  Sender: FDA-Public Use
  Company Number: IT-ROCHE-666066

PATIENT
  Sex: Male

DRUGS (3)
  1. ROCEPHIN [Suspect]
     Dosage: FREQUENCY REPORTED AS DAILY.
     Route: 042
     Dates: start: 20090919, end: 20090919
  2. TAZOCIN [Suspect]
     Dosage: FREQUENCY REPORTED AS DAILY.
     Route: 042
     Dates: start: 20090919, end: 20090920
  3. TAVANIC [Concomitant]
     Route: 042
     Dates: start: 20090920, end: 20090930

REACTIONS (1)
  - URTICARIA [None]
